FAERS Safety Report 16653623 (Version 2)
Quarter: 2019Q3

REPORT INFORMATION
  Report Type: Spontaneous
  Country: US (occurrence: US)
  Receive Date: 20190731
  Receipt Date: 20190920
  Transmission Date: 20191004
  Serious: Yes (Death, Hospitalization)
  Sender: FDA-Public Use
  Company Number: US-ELI_LILLY_AND_COMPANY-US201907015957

PATIENT
  Sex: Female
  Weight: 57.6 kg

DRUGS (1)
  1. VERZENIO [Suspect]
     Active Substance: ABEMACICLIB
     Indication: BREAST CANCER FEMALE
     Dosage: 150 MG, BID
     Route: 048
     Dates: start: 20190704, end: 20190720

REACTIONS (1)
  - Malignant neoplasm progression [Fatal]

NARRATIVE: CASE EVENT DATE: 20190727
